FAERS Safety Report 21671884 (Version 1)
Quarter: 2022Q4

REPORT INFORMATION
  Report Type: Report from Study
  Country: US (occurrence: US)
  Receive Date: 20221202
  Receipt Date: 20221202
  Transmission Date: 20230112
  Serious: No
  Sender: FDA-Public Use
  Company Number: US-ABBVIE-4182664

PATIENT
  Sex: Female

DRUGS (1)
  1. HUMIRA [Suspect]
     Active Substance: ADALIMUMAB
     Indication: Rheumatoid arthritis
     Dosage: STRENGTH 40 MG
     Route: 058

REACTIONS (4)
  - Pyrexia [Recovered/Resolved]
  - Injection site urticaria [Recovered/Resolved]
  - Dyspnoea [Recovered/Resolved]
  - Injection site warmth [Recovered/Resolved]
